FAERS Safety Report 6208225-X (Version None)
Quarter: 2009Q2

REPORT INFORMATION
  Report Type: 
  Country: None (occurrence: None)
  Receive Date: 20090522
  Receipt Date: 20090511
  Transmission Date: 20091009
  Serious: Yes (Other)
  Sender: FDA-Public Use
  Company Number: 2009S1008332

PATIENT
  Age: 67 Year
  Sex: Female

DRUGS (2)
  1. INDAPAMIDE [Suspect]
     Indication: DRUG USE FOR UNKNOWN INDICATION
  2. GLYBURIDE [Suspect]
     Indication: DRUG USE FOR UNKNOWN INDICATION

REACTIONS (3)
  - EJECTION FRACTION DECREASED [None]
  - ELECTROCARDIOGRAM QT PROLONGED [None]
  - TORSADE DE POINTES [None]
